FAERS Safety Report 5107412-1 (Version None)
Quarter: 2006Q3

REPORT INFORMATION
  Report Type: 
  Country: None (occurrence: None)
  Receive Date: 20060731
  Receipt Date: 20060401
  Transmission Date: 20061208
  Serious: No
  Sender: FDA-Public Use
  Company Number: 2006PV011391

PATIENT
  Age: 70 Year
  Sex: Female
  Weight: 81.6475 kg

DRUGS (4)
  1. BYETTA [Suspect]
     Indication: DIABETES MELLITUS NON-INSULIN-DEPENDENT
     Dosage: 5 MCG; BID; SC
     Route: 058
     Dates: start: 20060330
  2. AMARYL [Concomitant]
  3. CPIMADIN ^BOOTS^ [Concomitant]
  4. MULTIPLE CARDIAC MEDICATIONS [Concomitant]

REACTIONS (9)
  - ABDOMINAL PAIN UPPER [None]
  - ANGINA PECTORIS [None]
  - BLOOD GLUCOSE DECREASED [None]
  - CARDIAC DISORDER [None]
  - DECREASED APPETITE [None]
  - DYSPNOEA [None]
  - NAUSEA [None]
  - UNEVALUABLE EVENT [None]
  - VISION BLURRED [None]
